FAERS Safety Report 4845814-9 (Version None)
Quarter: 2005Q4

REPORT INFORMATION
  Report Type: 
  Country: None (occurrence: None)
  Receive Date: 20051202
  Receipt Date: 20051202
  Transmission Date: 20060501
  Serious: Yes (Life-Threatening, Hospitalization, Other)
  Sender: FDA-Public Use
  Company Number: None

PATIENT
  Age: 60 Year
  Sex: Female
  Weight: 62 kg

DRUGS (2)
  1. ALTACE [Suspect]
     Indication: HYPERTENSION
     Dosage: 10MG   DAILY   PO
     Route: 048
     Dates: start: 20050201, end: 20051129
  2. ALTACE [Suspect]
     Indication: MYOCARDITIS
     Dosage: 10MG   DAILY   PO
     Route: 048
     Dates: start: 20050201, end: 20051129

REACTIONS (9)
  - ABDOMINAL DISTENSION [None]
  - ABDOMINAL PAIN [None]
  - ANGIONEUROTIC OEDEMA [None]
  - ASCITES [None]
  - BODY TEMPERATURE INCREASED [None]
  - DIARRHOEA [None]
  - GASTROINTESTINAL OBSTRUCTION [None]
  - VOMITING [None]
  - WHITE BLOOD CELL COUNT INCREASED [None]
